FAERS Safety Report 7807805-5 (Version None)
Quarter: 2011Q4

REPORT INFORMATION
  Report Type: 
  Country: None (occurrence: None)
  Receive Date: 20111011
  Receipt Date: 20110919
  Transmission Date: 20120403
  Serious: Yes (Death, Other)
  Sender: FDA-Public Use
  Company Number: ES-ROXANE LABORATORIES, INC.-2011-DE-05038GD

PATIENT
  Age: 78 Year
  Sex: Female

DRUGS (4)
  1. PREDNISONE [Suspect]
     Indication: HODGKIN'S DISEASE NODULAR SCLEROSIS STAGE II SUPRADIAPHRAGMATIC
     Dosage: 40 MG
  2. VINCRISTINE [Suspect]
     Indication: HODGKIN'S DISEASE NODULAR SCLEROSIS STAGE II SUPRADIAPHRAGMATIC
  3. CYCLOPHOSPHAMIDE [Suspect]
     Indication: HODGKIN'S DISEASE NODULAR SCLEROSIS STAGE II SUPRADIAPHRAGMATIC
  4. PROCARBAZINE HYDROCHLORIDE [Suspect]
     Indication: HODGKIN'S DISEASE NODULAR SCLEROSIS STAGE II SUPRADIAPHRAGMATIC

REACTIONS (17)
  - GASTROINTESTINAL DISORDER [None]
  - RENAL FAILURE ACUTE [None]
  - THROMBOCYTOPENIA [None]
  - VOMITING [None]
  - DEPRESSED LEVEL OF CONSCIOUSNESS [None]
  - BACTERIAL SEPSIS [None]
  - DIABETES MELLITUS INADEQUATE CONTROL [None]
  - NEUTROPENIA [None]
  - BACILLUS INFECTION [None]
  - MULTI-ORGAN FAILURE [None]
  - DIARRHOEA [None]
  - RHABDOMYOLYSIS [None]
  - METABOLIC ACIDOSIS [None]
  - COAGULOPATHY [None]
  - BLOOD PRESSURE DECREASED [None]
  - ANURIA [None]
  - SEPTIC SHOCK [None]
